FAERS Safety Report 6483506-3 (Version None)
Quarter: 2009Q4

REPORT INFORMATION
  Report Type: 
  Country: None (occurrence: None)
  Receive Date: 20091208
  Receipt Date: 20091208
  Transmission Date: 20100525
  Serious: Yes (Hospitalization)
  Sender: FDA-Public Use
  Company Number: None

PATIENT
  Sex: Female
  Weight: 64.3 kg

DRUGS (7)
  1. ZYPREXA [Suspect]
     Indication: SCHIZOAFFECTIVE DISORDER BIPOLAR TYPE
     Dosage: AS ABOVE
     Dates: start: 20070709
  2. METOPROLOL [Concomitant]
  3. LEXAPRO [Concomitant]
  4. TAPAZOLE [Concomitant]
  5. GABAPENTIN [Concomitant]
  6. STOOL SOFTENER [Concomitant]
  7. ULTRAM [Concomitant]

REACTIONS (2)
  - FALL [None]
  - HIP FRACTURE [None]
